FAERS Safety Report 18604998 (Version 1)
Quarter: 2020Q4

REPORT INFORMATION
  Report Type: Spontaneous
  Country: US (occurrence: US)
  Receive Date: 20201211
  Receipt Date: 20201211
  Transmission Date: 20210114
  Serious: No
  Sender: FDA-Public Use
  Company Number: US-CELGENEUS-USA-20201201551

PATIENT
  Sex: Female

DRUGS (1)
  1. REBLOZYL [Suspect]
     Active Substance: LUSPATERCEPT-AAMT
     Indication: THALASSAEMIA
     Route: 041
     Dates: start: 20201104

REACTIONS (3)
  - Bone pain [Unknown]
  - Hypertension [Unknown]
  - Myalgia [Unknown]

NARRATIVE: CASE EVENT DATE: 2020
